FAERS Safety Report 7058087-6 (Version None)
Quarter: 2010Q4

REPORT INFORMATION
  Report Type: 
  Country: None (occurrence: None)
  Receive Date: 20101022
  Receipt Date: 20101008
  Transmission Date: 20110411
  Serious: Yes (Disabling, Other)
  Sender: FDA-Public Use
  Company Number: US-ELI_LILLY_AND_COMPANY-US201010003397

PATIENT
  Sex: Female

DRUGS (13)
  1. FORTEO [Suspect]
     Indication: OSTEOPOROSIS
     Dosage: 20 UG, DAILY (1/D)
     Route: 065
  2. SERTRALINE HYDROCHLORIDE [Concomitant]
  3. TOPAMAX [Concomitant]
  4. PRILOSEC [Concomitant]
  5. OXYCODONE [Concomitant]
  6. OPANA [Concomitant]
  7. XANAX [Concomitant]
  8. SOMA [Concomitant]
  9. CIPRO [Concomitant]
  10. IMITREX [Concomitant]
  11. ZOLOFT [Concomitant]
  12. VITAMIN D [Concomitant]
  13. ASCORBIC ACID [Concomitant]

REACTIONS (12)
  - AMNESIA [None]
  - ASTHENIA [None]
  - DISABILITY [None]
  - DIZZINESS [None]
  - FALL [None]
  - HEPATIC STEATOSIS [None]
  - LOSS OF CONSCIOUSNESS [None]
  - OEDEMA PERIPHERAL [None]
  - PAIN [None]
  - PYREXIA [None]
  - SPINAL FRACTURE [None]
  - SPLENOMEGALY [None]
